FAERS Safety Report 10213485 (Version 1)
Quarter: 2014Q2

REPORT INFORMATION
  Report Type: Spontaneous
  Country: BE (occurrence: BE)
  Receive Date: 20140603
  Receipt Date: 20140603
  Transmission Date: 20141212
  Serious: Yes (Other)
  Sender: FDA-Public Use
  Company Number: BE-JNJFOC-20140517086

PATIENT
  Age: 38 Year
  Sex: Male

DRUGS (3)
  1. INFLIXIMAB, RECOMBINANT [Suspect]
     Indication: CROHN^S DISEASE
     Route: 042
  2. INFLIXIMAB, RECOMBINANT [Suspect]
     Indication: CROHN^S DISEASE
     Route: 042
     Dates: start: 201002
  3. AZATHIOPRINE [Concomitant]
     Indication: CROHN^S DISEASE
     Route: 065

REACTIONS (2)
  - Disseminated tuberculosis [Recovering/Resolving]
  - Lymph node tuberculosis [Recovering/Resolving]
